FAERS Safety Report 21685584 (Version 1)
Quarter: 2022Q4

REPORT INFORMATION
  Report Type: Spontaneous
  Country: DE (occurrence: DE)
  Receive Date: 20221206
  Receipt Date: 20221206
  Transmission Date: 20230113
  Serious: Yes (Death, Other)
  Sender: FDA-Public Use
  Company Number: DE-SUN PHARMACEUTICAL INDUSTRIES LTD-2022RR-366490

PATIENT
  Age: 45 Year
  Sex: Male

DRUGS (4)
  1. IMATINIB [Suspect]
     Active Substance: IMATINIB
     Indication: Mastocytic leukaemia
     Dosage: UNK
     Route: 065
     Dates: start: 201802, end: 201907
  2. CLADRIBINE [Concomitant]
     Active Substance: CLADRIBINE
     Indication: Mastocytic leukaemia
     Dosage: UNK
     Route: 065
  3. MIDOSTAURIN [Concomitant]
     Active Substance: MIDOSTAURIN
     Indication: Mastocytic leukaemia
     Dosage: UNK
     Route: 065
  4. RIPRETINIB [Concomitant]
     Active Substance: RIPRETINIB
     Indication: Mastocytic leukaemia
     Dosage: UNK
     Route: 065

REACTIONS (3)
  - Drug ineffective [Fatal]
  - Disease progression [Fatal]
  - Therapeutic product effect incomplete [Unknown]
